FAERS Safety Report 25298278 (Version 1)
Quarter: 2025Q2

REPORT INFORMATION
  Report Type: Spontaneous
  Country: US (occurrence: US)
  Receive Date: 20250512
  Receipt Date: 20250512
  Transmission Date: 20250717
  Serious: No
  Sender: JOHNSON AND JOHNSON
  Company Number: US-JNJFOC-20250511665

PATIENT
  Age: 28 Year
  Sex: Male

DRUGS (1)
  1. SPRAVATO [Suspect]
     Active Substance: ESKETAMINE
     Indication: Persistent depressive disorder
     Route: 045
     Dates: start: 202502

REACTIONS (5)
  - Restless legs syndrome [Recovering/Resolving]
  - Disturbance in attention [Unknown]
  - Insomnia [Unknown]
  - Fatigue [Unknown]
  - Sitting disability [Unknown]
